FAERS Safety Report 12555958 (Version 1)
Quarter: 2016Q3

REPORT INFORMATION
  Report Type: Spontaneous
  Country: JP (occurrence: JP)
  Receive Date: 20160714
  Receipt Date: 20160714
  Transmission Date: 20161109
  Serious: Yes (Other)
  Sender: FDA-Public Use
  Company Number: JP-MYLANLABS-2016M1029033

PATIENT

DRUGS (4)
  1. AMPICILLIN [Suspect]
     Active Substance: AMPICILLIN
     Indication: NEISSERIA INFECTION
     Dosage: 12G/DAY
     Route: 065
  2. CEFTRIAXONE. [Suspect]
     Active Substance: CEFTRIAXONE
     Indication: NEISSERIA INFECTION
     Dosage: 4G/DAY
     Route: 065
  3. DEXAMETHASONE. [Concomitant]
     Active Substance: DEXAMETHASONE
     Indication: NEISSERIA INFECTION
     Dosage: 12G/DAY
     Route: 065
  4. VANCOMYCIN [Concomitant]
     Active Substance: VANCOMYCIN
     Indication: NEISSERIA INFECTION
     Dosage: 2G/DAY
     Route: 065

REACTIONS (2)
  - Renal injury [Unknown]
  - Neutropenia [Recovering/Resolving]
